FAERS Safety Report 10038693 (Version 2)
Quarter: 2014Q2

REPORT INFORMATION
  Report Type: Report from Study
  Country: DE (occurrence: DE)
  Receive Date: 20140326
  Receipt Date: 20140401
  Transmission Date: 20141212
  Serious: Yes (Hospitalization)
  Sender: FDA-Public Use
  Company Number: DE-ABBVIE-14P-062-1214904-00

PATIENT
  Age: 23 Year
  Sex: Female

DRUGS (2)
  1. HUMIRA PEN [Suspect]
     Indication: CROHN^S DISEASE
     Route: 058
     Dates: start: 20130829, end: 20140130
  2. HUMIRA PEN [Suspect]
     Route: 058
     Dates: start: 20140327

REACTIONS (2)
  - Pancreatic neoplasm [Recovering/Resolving]
  - Malaise [Recovering/Resolving]
